FAERS Safety Report 6575863-4 (Version None)
Quarter: 2010Q1

REPORT INFORMATION
  Report Type: 
  Country: None (occurrence: None)
  Receive Date: 20100209
  Receipt Date: 20100126
  Transmission Date: 20100710
  Serious: Yes (Other)
  Sender: FDA-Public Use
  Company Number: DE-MYLANLABS-2010S1001697

PATIENT
  Age: 27 Year
  Sex: Female

DRUGS (1)
  1. PENTOXIFYLLINE [Suspect]
     Indication: TINNITUS
     Route: 048
     Dates: start: 20091126

REACTIONS (2)
  - MYOTONIA [None]
  - PAIN [None]
